FAERS Safety Report 19606239 (Version 2)
Quarter: 2022Q3

REPORT INFORMATION
  Report Type: Spontaneous
  Country: US (occurrence: US)
  Receive Date: 20210725
  Receipt Date: 20220927
  Transmission Date: 20221027
  Serious: Yes (Death, Other)
  Sender: FDA-Public Use
  Company Number: US-SA-2021SA244133

PATIENT
  Age: 66 Year
  Sex: Female

DRUGS (1)
  1. ZANTAC [Suspect]
     Active Substance: RANITIDINE HYDROCHLORIDE
     Indication: Dyspepsia
     Dosage: 150 MG, QD
     Route: 065
     Dates: start: 200001, end: 201801

REACTIONS (2)
  - Colorectal cancer stage IV [Fatal]
  - Skin cancer [Fatal]

NARRATIVE: CASE EVENT DATE: 20150201
